FAERS Safety Report 24775272 (Version 1)
Quarter: 2024Q4

REPORT INFORMATION
  Report Type: Spontaneous
  Country: CN (occurrence: CN)
  Receive Date: 20241226
  Receipt Date: 20241226
  Transmission Date: 20250115
  Serious: Yes (Hospitalization)
  Sender: ABBVIE
  Company Number: CN-LUNDBECK-DKLU4008310

PATIENT
  Age: 22 Year

DRUGS (3)
  1. LEXAPRO [Suspect]
     Active Substance: ESCITALOPRAM OXALATE
     Indication: Product used for unknown indication
     Dosage: 15 MILLIGRAM
     Route: 048
     Dates: start: 20241010, end: 20241015
  2. LEXAPRO [Suspect]
     Active Substance: ESCITALOPRAM OXALATE
     Indication: Product used for unknown indication
     Dosage: 10 MILLIGRAM
     Route: 048
     Dates: start: 20241008, end: 20241010
  3. LEXAPRO [Suspect]
     Active Substance: ESCITALOPRAM OXALATE
     Indication: Product used for unknown indication
     Dosage: 5 MILLIGRAM
     Route: 048

REACTIONS (1)
  - Hepatic enzyme increased [Recovering/Resolving]

NARRATIVE: CASE EVENT DATE: 20241012
